FAERS Safety Report 6805154-5 (Version None)
Quarter: 2010Q2

REPORT INFORMATION
  Report Type: 
  Country: None (occurrence: None)
  Receive Date: 20100628
  Receipt Date: 20070918
  Transmission Date: 20101027
  Serious: No
  Sender: FDA-Public Use
  Company Number: US-PFIZER INC-2007075071

PATIENT
  Sex: Female

DRUGS (2)
  1. GEODON [Suspect]
     Indication: BIPOLAR DISORDER
  2. GEODON [Suspect]
     Indication: SCHIZOPHRENIA

REACTIONS (2)
  - DRUG INEFFECTIVE [None]
  - PARAESTHESIA [None]
